FAERS Safety Report 21810649 (Version 4)
Quarter: 2023Q4

REPORT INFORMATION
  Report Type: Report from Study
  Country: US (occurrence: US)
  Receive Date: 20230103
  Receipt Date: 20231213
  Transmission Date: 20240110
  Serious: Yes (Other)
  Sender: FDA-Public Use
  Company Number: US-TAKEDA-2022TUS102436

PATIENT
  Sex: Male
  Weight: 77 kg

DRUGS (1)
  1. PONATINIB [Suspect]
     Active Substance: PONATINIB
     Indication: Chronic myeloid leukaemia
     Dosage: 30 MILLIGRAM, QD
     Route: 048

REACTIONS (10)
  - Dementia [Not Recovered/Not Resolved]
  - Micturition disorder [Unknown]
  - Penile pain [Unknown]
  - Dysuria [Unknown]
  - Full blood count decreased [Unknown]
  - Fatigue [Unknown]
  - Abdominal pain upper [Unknown]
  - Dyspepsia [Unknown]
  - Weight decreased [Unknown]
  - Dyspnoea [Unknown]
